FAERS Safety Report 20725331 (Version 1)
Quarter: 2022Q2

REPORT INFORMATION
  Report Type: Spontaneous
  Country: US (occurrence: None)
  Receive Date: 20220419
  Receipt Date: 20220419
  Transmission Date: 20220720
  Serious: No
  Sender: FDA-Public Use
  Company Number: None

PATIENT
  Age: 68 Year
  Sex: Female
  Weight: 54.43 kg

DRUGS (1)
  1. EUTHYROX [Suspect]
     Active Substance: LEVOTHYROXINE SODIUM
     Indication: Post procedural hypothyroidism
     Dosage: FREQUENCY : DAILY;?
     Route: 048
     Dates: start: 20210809, end: 202112

REACTIONS (13)
  - Alopecia [None]
  - Pruritus [None]
  - Rash [None]
  - Skin exfoliation [None]
  - Night sweats [None]
  - Anxiety [None]
  - Decreased appetite [None]
  - Irritability [None]
  - Insomnia [None]
  - Bone pain [None]
  - Affect lability [None]
  - Fatigue [None]
  - Impaired healing [None]

NARRATIVE: CASE EVENT DATE: 20210809
